FAERS Safety Report 6092174-4 (Version None)
Quarter: 2009Q1

REPORT INFORMATION
  Report Type: 
  Country: None (occurrence: None)
  Receive Date: 20090223
  Receipt Date: 20090212
  Transmission Date: 20090719
  Serious: Yes (Life-Threatening)
  Sender: FDA-Public Use
  Company Number: 177831

PATIENT
  Age: 31 Year
  Sex: Female

DRUGS (14)
  1. VANCOMYCIN [Suspect]
     Indication: INFECTION
     Dosage: 1 G, INTRAVENOUS (NOT OTHERWISE SPECIFIED); 500 MG (FOUR TIMES DAILY)
     Route: 042
     Dates: start: 20090129, end: 20090202
  2. VANCOMYCIN [Suspect]
     Indication: INFECTION
     Dosage: 1 G, INTRAVENOUS (NOT OTHERWISE SPECIFIED); 500 MG (FOUR TIMES DAILY)
     Route: 042
     Dates: start: 20090202, end: 20090202
  3. CLARITHROMYCIN [Suspect]
     Indication: INFECTION
     Dosage: 400 MG; 250 MG (TWICE DAILY) INTRAVENOUS (NOT OTHERWISE SPECIFIED)
     Route: 042
     Dates: start: 20090129, end: 20090202
  4. CLARITHROMYCIN [Suspect]
     Indication: INFECTION
     Dosage: 400 MG; 250 MG (TWICE DAILY) INTRAVENOUS (NOT OTHERWISE SPECIFIED)
     Route: 042
     Dates: start: 20090202, end: 20090202
  5. AZATHIOPRINE [Concomitant]
  6. (CALCICHEW D3) [Concomitant]
  7. FLUCLOXACILLIN SODIUM (FLUCLOXACILLIN) [Concomitant]
  8. MORPHINE SULPHATE INJ BP (MORPHINE) [Concomitant]
  9. ONDANESETRON INJECTION (ONDANSETRON) [Concomitant]
  10. ACETAMINOPHEN [Concomitant]
  11. PENTASA [Concomitant]
  12. PROPOFOL [Concomitant]
  13. ULTIVA [Concomitant]
  14. ROCURONIUM BROMIDE [Concomitant]

REACTIONS (1)
  - DRUG HYPERSENSITIVITY [None]
